FAERS Safety Report 13452506 (Version 2)
Quarter: 2017Q2

REPORT INFORMATION
  Report Type: Spontaneous
  Country: US (occurrence: US)
  Receive Date: 20170418
  Receipt Date: 20170521
  Transmission Date: 20170830
  Serious: No
  Sender: FDA-Public Use
  Company Number: US-TEVA-717697ACC

PATIENT
  Age: 73 Year
  Sex: Female
  Weight: 59.02 kg

DRUGS (11)
  1. COENZYME Q10 [Concomitant]
     Active Substance: UBIDECARENONE
  2. ALDOSTERONE [Concomitant]
     Active Substance: ALDOSTERONE
  3. COZAAR [Concomitant]
     Active Substance: LOSARTAN POTASSIUM
  4. AMOXICILLIN. [Concomitant]
     Active Substance: AMOXICILLIN
  5. NEURONTIN [Concomitant]
     Active Substance: GABAPENTIN
  6. WARFARIN [Suspect]
     Active Substance: WARFARIN
  7. COREG [Concomitant]
     Active Substance: CARVEDILOL
  8. WARFARTAB [Suspect]
     Active Substance: WARFARIN SODIUM
     Indication: CORONARY ARTERY BYPASS
  9. WARFARTAB [Suspect]
     Active Substance: WARFARIN SODIUM
     Indication: ATRIAL FIBRILLATION
  10. NITROFURANTOIN. [Concomitant]
     Active Substance: NITROFURANTOIN
  11. CRESTOR [Concomitant]
     Active Substance: ROSUVASTATIN CALCIUM

REACTIONS (4)
  - Asthenia [Unknown]
  - Incorrect dose administered [Unknown]
  - Wrong technique in product usage process [Unknown]
  - Dizziness [Unknown]

NARRATIVE: CASE EVENT DATE: 20161001
